FAERS Safety Report 4422128-2 (Version None)
Quarter: 2004Q3

REPORT INFORMATION
  Report Type: 
  Country: None (occurrence: None)
  Receive Date: 20040712
  Receipt Date: 20030506
  Transmission Date: 20050211
  Serious: No
  Sender: FDA-Public Use
  Company Number: TAP2003Q00949

PATIENT
  Age: 45 Year
  Sex: Male
  Weight: 72.5755 kg

DRUGS (5)
  1. PREVACID [Suspect]
     Indication: FLATULENCE
     Dosage: 30 MG, 1 IN 1 D, PER ORAL
     Route: 048
     Dates: start: 20030415, end: 20030416
  2. BENADRYL (BENADRYL ALLERGY) [Concomitant]
  3. ZYRTEC [Concomitant]
  4. FLOVENT [Concomitant]
  5. COMBIVENT [Concomitant]

REACTIONS (3)
  - ASTHMA [None]
  - HYPERSENSITIVITY [None]
  - URTICARIA [None]
